FAERS Safety Report 8018362-5 (Version None)
Quarter: 2012Q1

REPORT INFORMATION
  Report Type: 
  Country: None (occurrence: None)
  Receive Date: 20120103
  Receipt Date: 20111223
  Transmission Date: 20120608
  Serious: Yes (Other)
  Sender: FDA-Public Use
  Company Number: BR-JNJFOC-20111211872

PATIENT
  Sex: Female
  Weight: 58 kg

DRUGS (1)
  1. LISTERINE WHITENING [Suspect]
     Indication: PRODUCT USED FOR UNKNOWN INDICATION
     Route: 002
     Dates: start: 20080101, end: 20111221

REACTIONS (3)
  - HYPOAESTHESIA ORAL [None]
  - GINGIVAL SWELLING [None]
  - APPLICATION SITE ULCER [None]
